FAERS Safety Report 7373214-9 (Version None)
Quarter: 2011Q1

REPORT INFORMATION
  Report Type: 
  Country: None (occurrence: None)
  Receive Date: 20110324
  Receipt Date: 20110311
  Transmission Date: 20110831
  Serious: Yes (Other)
  Sender: FDA-Public Use
  Company Number: BR-GENENTECH-301518

PATIENT
  Sex: Female
  Weight: 70 kg

DRUGS (18)
  1. IBUPROFEN [Concomitant]
     Indication: PRODUCT USED FOR UNKNOWN INDICATION
     Dosage: 600 MG, UNK
  2. ALLEGRA [Concomitant]
     Indication: PRODUCT USED FOR UNKNOWN INDICATION
  3. CALCIUM [Concomitant]
     Indication: PRODUCT USED FOR UNKNOWN INDICATION
     Dosage: UNK
  4. PREDNISONE [Concomitant]
  5. HYDROCHLOROTHIAZIDE [Concomitant]
     Indication: PRODUCT USED FOR UNKNOWN INDICATION
     Dosage: 25 MG, UNK
  6. AAS INFANTIL [Concomitant]
     Indication: PRODUCT USED FOR UNKNOWN INDICATION
     Dosage: 100 MG, UNK
  7. CALCIUM CARBONATE [Concomitant]
     Indication: PRODUCT USED FOR UNKNOWN INDICATION
     Dosage: UNK
  8. RITUXIMAB [Suspect]
     Indication: RHEUMATOID ARTHRITIS
     Dosage: 1000 MG, UNK
     Route: 042
     Dates: start: 20090914, end: 20090928
  9. FUROSEMIDE [Concomitant]
     Indication: PRODUCT USED FOR UNKNOWN INDICATION
  10. RITUXIMAB [Suspect]
     Dosage: 1000 MG, UNK
     Route: 042
     Dates: start: 20100621, end: 20100705
  11. PREDNISONE [Concomitant]
     Indication: PRODUCT USED FOR UNKNOWN INDICATION
     Dosage: 10 MG, UNK
  12. ARAVA [Concomitant]
     Indication: PRODUCT USED FOR UNKNOWN INDICATION
     Dosage: 20 MG, UNK
  13. CHLOROQUINE [Concomitant]
     Indication: PRODUCT USED FOR UNKNOWN INDICATION
     Dosage: 40 MG, UNK
  14. METHOTREXATE [Concomitant]
     Indication: PRODUCT USED FOR UNKNOWN INDICATION
     Dosage: 2.5 MG, UNK
  15. DIPROSPAN [Concomitant]
     Indication: PRODUCT USED FOR UNKNOWN INDICATION
  16. SELOZOK [Concomitant]
     Indication: PRODUCT USED FOR UNKNOWN INDICATION
     Dosage: 25 MG, UNK
  17. PREDNISONE [Concomitant]
     Dosage: 15 MG, UNK
  18. CELECOXIB [Concomitant]
     Indication: PRODUCT USED FOR UNKNOWN INDICATION
     Dosage: 200 MG, UNK

REACTIONS (11)
  - PAIN IN EXTREMITY [None]
  - HYPERTENSION [None]
  - MALAISE [None]
  - BLOOD PRESSURE INCREASED [None]
  - LYMPHATIC OBSTRUCTION [None]
  - DRY THROAT [None]
  - OSTEOPENIA [None]
  - DRUG INEFFECTIVE [None]
  - JOINT RANGE OF MOTION DECREASED [None]
  - PAIN [None]
  - WEIGHT INCREASED [None]
